FAERS Safety Report 20210448 (Version 1)
Quarter: 2021Q4

REPORT INFORMATION
  Report Type: Report from Study
  Country: IT (occurrence: IT)
  Receive Date: 20211221
  Receipt Date: 20211221
  Transmission Date: 20220304
  Serious: Yes (Hospitalization)
  Sender: FDA-Public Use
  Company Number: None

PATIENT
  Age: 48 Year
  Sex: Female

DRUGS (6)
  1. LORAZEPAM [Suspect]
     Active Substance: LORAZEPAM
     Dosage: 10 MG,ABUSE / MISUSE
     Route: 048
     Dates: start: 20211115, end: 20211115
  2. LORAZEPAM [Suspect]
     Active Substance: LORAZEPAM
     Dosage: 20 ML
     Route: 048
     Dates: start: 20211115, end: 20211115
  3. ALPRAZOLAM [Suspect]
     Active Substance: ALPRAZOLAM
     Dosage: 5 MG,ABUSE / MISUSE
     Dates: start: 20211115, end: 20211115
  4. OLANZAPINE [Concomitant]
     Active Substance: OLANZAPINE
  5. LITHIUM [Concomitant]
     Active Substance: LITHIUM
  6. CITALOPRAM [Concomitant]
     Active Substance: CITALOPRAM HYDROBROMIDE

REACTIONS (3)
  - Bradyphrenia [Not Recovered/Not Resolved]
  - Bradykinesia [Not Recovered/Not Resolved]
  - Substance abuse [Not Recovered/Not Resolved]

NARRATIVE: CASE EVENT DATE: 20211115
